FAERS Safety Report 12527653 (Version 1)
Quarter: 2016Q3

REPORT INFORMATION
  Report Type: Spontaneous
  Country: DE (occurrence: DE)
  Receive Date: 20160705
  Receipt Date: 20160705
  Transmission Date: 20161109
  Serious: Yes (Other)
  Sender: FDA-Public Use
  Company Number: DE-PFIZER INC-2016328761

PATIENT
  Sex: Female
  Weight: 2 kg

DRUGS (2)
  1. ATENOLOL. [Suspect]
     Active Substance: ATENOLOL
     Indication: HYPERTENSION
     Dosage: 75 MG, 1X/DAY
     Route: 064
     Dates: start: 20120912, end: 20130626
  2. FOLIC ACID W/VITAMIN B12 NOS [Concomitant]
     Indication: PROPHYLAXIS OF NEURAL TUBE DEFECT
     Dosage: BETWEEN 0.8 AND 0.4 MG/D
     Dates: start: 20120912, end: 20130626

REACTIONS (2)
  - Maternal exposure during pregnancy [Unknown]
  - Small for dates baby [Recovered/Resolved]

NARRATIVE: CASE EVENT DATE: 20120912
